FAERS Safety Report 5354834-X (Version None)
Quarter: 2007Q2

REPORT INFORMATION
  Report Type: 
  Country: None (occurrence: None)
  Receive Date: 20070611
  Receipt Date: 20070530
  Transmission Date: 20071010
  Serious: Yes (Hospitalization)
  Sender: FDA-Public Use
  Company Number: TPA2007A00974

PATIENT
  Age: 69 Year
  Sex: Female
  Weight: 54.2048 kg

DRUGS (7)
  1. PIOGLITAZONE HCL [Suspect]
     Indication: CARDIOVASCULAR EVENT PROPHYLAXIS
     Dosage: 45 MG, 1 IN 1 D, PER ORAL
     Route: 048
     Dates: start: 20060510
  2. ACTONEL [Concomitant]
  3. NEXIUM [Concomitant]
  4. DILTIAZEM [Concomitant]
  5. LIPITOR [Concomitant]
  6. ASPIRIN [Concomitant]
  7. DETROL [Concomitant]

REACTIONS (5)
  - FACIAL BONES FRACTURE [None]
  - FALL [None]
  - HYPOKALAEMIA [None]
  - POLYDIPSIA [None]
  - SPINAL FRACTURE [None]
